FAERS Safety Report 8278960-0 (Version None)
Quarter: 2012Q2

REPORT INFORMATION
  Report Type: 
  Country: None (occurrence: None)
  Receive Date: 20120412
  Receipt Date: 20111130
  Transmission Date: 20120825
  Serious: No
  Sender: FDA-Public Use
  Company Number: US-ASTRAZENECA-2011SE72612

PATIENT
  Age: 53 Year
  Sex: Female

DRUGS (3)
  1. LORAZEPAM [Concomitant]
     Indication: BLOOD PRESSURE
  2. NEXIUM [Suspect]
     Indication: GASTROOESOPHAGEAL REFLUX DISEASE
     Route: 048
  3. DOTALAZINE [Concomitant]
     Indication: BLOOD PRESSURE

REACTIONS (2)
  - MALAISE [None]
  - INCORRECT DOSE ADMINISTERED [None]
